FAERS Safety Report 9665570 (Version 1)
Quarter: 2013Q4

REPORT INFORMATION
  Report Type: Spontaneous
  Country: US (occurrence: US)
  Receive Date: 20131104
  Receipt Date: 20131104
  Transmission Date: 20140711
  Serious: No
  Sender: FDA-Public Use
  Company Number: US-PFIZER INC-2013312748

PATIENT
  Age: 50 Year
  Sex: Male
  Weight: 66.2 kg

DRUGS (3)
  1. CHANTIX [Suspect]
     Indication: SMOKING CESSATION THERAPY
     Dosage: UNK
     Dates: start: 201301
  2. LIDODERM [Concomitant]
     Indication: BACK PAIN
     Dosage: UNK
  3. HYDROCODONE [Concomitant]
     Dosage: 325 MG, AS NEEDED

REACTIONS (2)
  - Nightmare [Recovered/Resolved]
  - Cold sweat [Unknown]
